FAERS Safety Report 21622715 (Version 2)
Quarter: 2023Q1

REPORT INFORMATION
  Report Type: Spontaneous
  Country: US (occurrence: US)
  Receive Date: 20221121
  Receipt Date: 20230320
  Transmission Date: 20230418
  Serious: No
  Sender: FDA-Public Use
  Company Number: US-PFIZER INC-PV202200107621

PATIENT
  Age: 24 Year
  Sex: Female

DRUGS (1)
  1. INLYTA [Suspect]
     Active Substance: AXITINIB
     Indication: Sarcoma
     Dosage: UNK

REACTIONS (4)
  - Fatigue [Unknown]
  - Diarrhoea [Unknown]
  - Laboratory test abnormal [Unknown]
  - Off label use [Unknown]
